FAERS Safety Report 9233064 (Version 2)
Quarter: 2013Q2

REPORT INFORMATION
  Report Type: Spontaneous
  Country: US (occurrence: US)
  Receive Date: 20130416
  Receipt Date: 20130611
  Transmission Date: 20140414
  Serious: Yes (Other)
  Sender: FDA-Public Use
  Company Number: PHEH2013US008469

PATIENT
  Age: 53 Year
  Sex: Female
  Weight: 169 kg

DRUGS (16)
  1. RECLAST [Suspect]
     Dosage: 5 MG / 100 ML YEARLY
     Route: 042
     Dates: start: 20100204
  2. RECLAST [Suspect]
     Dosage: 5 MG / 100 ML YEARLY
     Route: 042
     Dates: start: 20110326
  3. RECLAST [Suspect]
     Dosage: 5 MG / 100 ML YEARLY
     Route: 042
     Dates: start: 20120618
  4. AMOXI TRIPTYLIN W/POTASSIUM CLAVULATE [Concomitant]
     Dosage: 875 MG-125MG EVERY 12 HOURS
     Route: 048
  5. DIFLUCAN [Concomitant]
     Dosage: 1 DF, QD
     Route: 048
  6. VITAMIN D2 [Concomitant]
     Dosage: 1 DF, EVERY WEEK
     Route: 048
  7. TYLENOL [Concomitant]
     Dosage: UNK UKN, UNK
  8. AMBIEN [Concomitant]
     Indication: INSOMNIA
     Dosage: 1 DF, QD (AT BED TIME)
  9. BENADRYL [Concomitant]
     Dosage: UNK UKN, UNK
  10. NASONEX [Concomitant]
     Dosage: 50 UG, (2 SPRAY)
  11. COQ-10 [Concomitant]
     Dosage: 100 MG, QD
     Route: 048
  12. WELLBUTRIN XL [Concomitant]
     Dosage: 1 DF, UNK
     Route: 048
  13. TESTIM [Concomitant]
     Dosage: 50 MG/5GM, 1/8 TEASPOON 3 TIMES PER WEEK
  14. CYANOCOBALAMIN [Concomitant]
     Dosage: 1,000 UG/ML, EVERY WEEK
     Route: 030
  15. FORTEO [Concomitant]
  16. CALCIUM CITRATE [Concomitant]
     Dosage: 5 DF, QD

REACTIONS (5)
  - Foot fracture [Recovered/Resolved]
  - Ankle fracture [Unknown]
  - Cystitis [Unknown]
  - Dysuria [Unknown]
  - Pain [Unknown]
